FAERS Safety Report 16036254 (Version 3)
Quarter: 2019Q2

REPORT INFORMATION
  Report Type: Spontaneous
  Country: PL (occurrence: PL)
  Receive Date: 20190305
  Receipt Date: 20190604
  Transmission Date: 20190711
  Serious: Yes (Death, Other)
  Sender: FDA-Public Use
  Company Number: PL-PFIZER INC-2019091242

PATIENT
  Age: 60 Year
  Sex: Male
  Weight: 101 kg

DRUGS (34)
  1. CYTARABINE. [Suspect]
     Active Substance: CYTARABINE
     Indication: DIFFUSE LARGE B-CELL LYMPHOMA
     Dosage: UNK
     Route: 065
  2. DOXORUBICIN HCL [Suspect]
     Active Substance: DOXORUBICIN HYDROCHLORIDE
     Dosage: 100 MG, 2 DAY OF 1 CYCLE OF R-CHOP CHEMOTHERAPY
     Route: 065
     Dates: start: 20170209
  3. PREDNISONE. [Suspect]
     Active Substance: PREDNISONE
     Indication: DIFFUSE LARGE B-CELL LYMPHOMA
     Dosage: 100MG, 1 DAY OF 1 CYCLE OF R-CHOP CHEMOTHERAPY
     Route: 065
     Dates: start: 20170208
  4. PREDNISONE. [Suspect]
     Active Substance: PREDNISONE
     Dosage: 100MG, 1 DAY OF 4 CYCLE
     Route: 048
     Dates: start: 20170608
  5. VINCRISTINE SULFATE. [Suspect]
     Active Substance: VINCRISTINE SULFATE
     Dosage: 2MG, 1 DAY OF 4 CYCLE
     Route: 042
     Dates: start: 20170608
  6. ENCORTON [PREDNISONE] [Suspect]
     Active Substance: PREDNISONE
     Indication: DIFFUSE LARGE B-CELL LYMPHOMA
     Dosage: 100 MG, 1X/DAY
     Route: 048
     Dates: start: 20170611
  7. ZARZIO [Concomitant]
     Active Substance: FILGRASTIM
     Dosage: 30 MILLION IU, UNK (1 AMPOULE)
     Route: 058
     Dates: start: 20170426
  8. MABTHERA [Suspect]
     Active Substance: RITUXIMAB
     Dosage: 700 MG, UNK
     Route: 042
     Dates: start: 20180719
  9. ENCORTON [PREDNISONE] [Suspect]
     Active Substance: PREDNISONE
     Dosage: 20 MG, UNK (3-2-0)
     Route: 048
  10. NYSTATIN. [Concomitant]
     Active Substance: NYSTATIN
     Dosage: 1-1-1, 7 DAYS, 3X/DAY
     Route: 048
  11. CYCLOPHOSPHAMIDE. [Suspect]
     Active Substance: CYCLOPHOSPHAMIDE
     Indication: DIFFUSE LARGE B-CELL LYMPHOMA
     Dosage: 1500MG, 2 DAY OF 1 CYCLE OF R-CHOP
     Route: 042
     Dates: start: 20170209
  12. VINCRISTINE SULFATE. [Suspect]
     Active Substance: VINCRISTINE SULFATE
     Dosage: 2MG, 2 DAY OF 2 CYCLE OF CHEMOTHERAPY
     Route: 065
     Dates: start: 20180424
  13. ZARZIO [Concomitant]
     Active Substance: FILGRASTIM
     Dosage: 30 MILLION IU, UNK (1 AMPOULE)
     Route: 058
     Dates: start: 20170402
  14. MABTHERA [Suspect]
     Active Substance: RITUXIMAB
     Indication: DIFFUSE LARGE B-CELL LYMPHOMA
     Dosage: 1 CYCLE OF R-CHOP CHEMOTHERAPY, 1 ST
     Route: 042
     Dates: start: 20170208
  15. CYCLOPHOSPHAMIDE. [Suspect]
     Active Substance: CYCLOPHOSPHAMIDE
     Dosage: 1500MG, 2 DAY OF 2 CYCLE
     Route: 042
     Dates: start: 20170424
  16. CYCLOPHOSPHAMIDE. [Suspect]
     Active Substance: CYCLOPHOSPHAMIDE
     Dosage: 1500MG, 1 DAY OF 4 CYCLE
     Route: 042
     Dates: start: 20170608
  17. VINCRISTINE SULFATE. [Suspect]
     Active Substance: VINCRISTINE SULFATE
     Indication: DIFFUSE LARGE B-CELL LYMPHOMA
     Dosage: 2MG, 2 DAY OF 1 CYCLE OF R-CHOP CHEMOTHERAPY
     Route: 065
     Dates: start: 20170209
  18. VINCRISTINE SULFATE. [Suspect]
     Active Substance: VINCRISTINE SULFATE
     Dosage: 2MG, 1 DAY OF THIRD CYCLE OF TREATMENT
     Route: 042
     Dates: start: 20170516
  19. POLPRAZOL [OMEPRAZOLE] [Concomitant]
     Active Substance: OMEPRAZOLE
     Dosage: 1-1-0, 7 DAYS
     Route: 048
  20. DOXORUBICIN HCL [Suspect]
     Active Substance: DOXORUBICIN HYDROCHLORIDE
     Dosage: 100MG, 1 DAY OF 4 CYCLE
     Route: 042
     Dates: start: 20170608
  21. PREDNISONE. [Suspect]
     Active Substance: PREDNISONE
     Dosage: 100MG, 2- 3 DAY OF 2 CYCLE OF CHEMOTHERAPY
     Route: 065
     Dates: start: 20170424
  22. MABTHERA [Suspect]
     Active Substance: RITUXIMAB
     Dosage: 700MG, THIRD CYCLE OF TREATMENT
     Route: 042
     Dates: start: 20170515
  23. ZARZIO [Concomitant]
     Active Substance: FILGRASTIM
     Dosage: 30 MILLION IU, UNK
     Route: 058
     Dates: start: 20170517
  24. DOXORUBICIN HCL [Suspect]
     Active Substance: DOXORUBICIN HYDROCHLORIDE
     Dosage: 100MG, 1 DAY OF THIRD CYCLE OF TREATMENT
     Route: 042
     Dates: start: 20170516
  25. MABTHERA [Suspect]
     Active Substance: RITUXIMAB
     Dosage: 700MG, 1 DAY OF 2 CYCLE OF CHEMOTHERAPY
     Route: 042
     Dates: start: 20170423
  26. CYCLOPHOSPHAMIDE. [Suspect]
     Active Substance: CYCLOPHOSPHAMIDE
     Dosage: 1500MG, 1 DAY OF THIRD CYCLE OF TREATMENT
     Route: 042
     Dates: start: 20170516
  27. MILURIT [Concomitant]
     Active Substance: ALLOPURINOL
     Dosage: 100 MG, 2X/DAY (1-0-1, 7 DAYS)
     Route: 048
  28. DOXORUBICIN HCL [Suspect]
     Active Substance: DOXORUBICIN HYDROCHLORIDE
     Dosage: 100MG, 2 DAY OF 2 CYCLE OF CHEMOTHERAPY
     Route: 065
     Dates: start: 20170424
  29. PREDNISONE. [Suspect]
     Active Substance: PREDNISONE
     Dosage: 100MG, 1 DAY OF THIRD CYCLE OF TREATMENT
     Route: 048
     Dates: start: 20170516
  30. MABTHERA [Suspect]
     Active Substance: RITUXIMAB
     Dosage: 700MG, 4TH CYCLE OF TREATMENT
     Route: 042
     Dates: start: 20170607
  31. MABTHERA [Suspect]
     Active Substance: RITUXIMAB
     Dosage: 700 MG, UNK
     Route: 042
     Dates: start: 20180423
  32. DEXAMETHASONE. [Suspect]
     Active Substance: DEXAMETHASONE
     Indication: DIFFUSE LARGE B-CELL LYMPHOMA
     Dosage: UNK
     Route: 065
  33. PLATINOL [Suspect]
     Active Substance: CISPLATIN
     Indication: DIFFUSE LARGE B-CELL LYMPHOMA
     Dosage: UNK
     Route: 065
  34. CIPRONEX [CIPROFLOXACIN] [Concomitant]
     Dosage: 1-0-1, 7 DAYS
     Route: 048

REACTIONS (8)
  - Lymphocytic infiltration [Fatal]
  - Bone marrow failure [Fatal]
  - Splenomegaly [Fatal]
  - Neoplasm recurrence [Fatal]
  - Leukopenia [Fatal]
  - Pyrexia [Fatal]
  - Death [Fatal]
  - Neutropenia [Fatal]

NARRATIVE: CASE EVENT DATE: 201807
